FAERS Safety Report 24205297 (Version 1)
Quarter: 2024Q3

REPORT INFORMATION
  Report Type: Spontaneous
  Country: FI (occurrence: FI)
  Receive Date: 20240813
  Receipt Date: 20240813
  Transmission Date: 20241017
  Serious: Yes (Other)
  Sender: JOHNSON AND JOHNSON
  Company Number: None

PATIENT
  Sex: Female

DRUGS (2)
  1. REMICADE [Suspect]
     Active Substance: INFLIXIMAB
     Indication: Inflammatory bowel disease
     Route: 041
     Dates: start: 202303
  2. INFLIXIMAB [Suspect]
     Active Substance: INFLIXIMAB
     Indication: Inflammatory bowel disease
     Route: 065
     Dates: start: 202401

REACTIONS (14)
  - Dyspnoea [Unknown]
  - Red blood cell sedimentation rate increased [Unknown]
  - C-reactive protein increased [Unknown]
  - Nodule [Unknown]
  - Night sweats [Unknown]
  - Haemoglobin decreased [Unknown]
  - Liver function test increased [Unknown]
  - Performance status decreased [Unknown]
  - General physical health deterioration [Unknown]
  - Macule [Unknown]
  - Drug specific antibody present [Unknown]
  - Pleurisy [Unknown]
  - Blood immunoglobulin G increased [Unknown]
  - Arthralgia [Unknown]

NARRATIVE: CASE EVENT DATE: 20240101
